FAERS Safety Report 13828648 (Version 1)
Quarter: 2017Q3

REPORT INFORMATION
  Report Type: Spontaneous
  Country: US (occurrence: US)
  Receive Date: 20170803
  Receipt Date: 20170803
  Transmission Date: 20171127
  Serious: Yes (Other)
  Sender: FDA-Public Use
  Company Number: US-SCIEGEN PHARMACEUTICALS INC-2017SCILIT00492

PATIENT
  Age: 29 Year
  Sex: Male

DRUGS (3)
  1. PHENIBUT [Concomitant]
     Active Substance: DIETARY SUPPLEMENT
     Indication: PRODUCT USED FOR UNKNOWN INDICATION
     Dosage: 100 G, EVERY 7 DAYS
     Route: 065
  2. GABAPENTIN TABLETS,USP [Suspect]
     Active Substance: GABAPENTIN
     Indication: PRODUCT USED FOR UNKNOWN INDICATION
     Dosage: UNK
     Route: 065
  3. BUPRENORPHINE/NALOXONE [Interacting]
     Active Substance: BUPRENORPHINE\NALOXONE
     Indication: DRUG USE DISORDER
     Dosage: 12 MG, QD
     Route: 065

REACTIONS (3)
  - Respiratory depression [Unknown]
  - Somnolence [Unknown]
  - Drug interaction [Unknown]
